FAERS Safety Report 5944925-4 (Version None)
Quarter: 2008Q4

REPORT INFORMATION
  Report Type: 
  Country: None (occurrence: None)
  Receive Date: 20081021
  Receipt Date: 20080205
  Transmission Date: 20090506
  Serious: Yes (Hospitalization, Disabling)
  Sender: FDA-Public Use
  Company Number: US-WYE-H02471408

PATIENT
  Age: 53 Year
  Sex: Female
  Weight: 59.02 kg

DRUGS (1)
  1. PREMARIN [Suspect]
     Indication: HOT FLUSH
     Dosage: 1.25 MG 1X PER 1 DAY, ORAL
     Route: 048
     Dates: start: 20061001, end: 20070106

REACTIONS (1)
  - CEREBROVASCULAR ACCIDENT [None]
